FAERS Safety Report 5497831-6 (Version None)
Quarter: 2007Q4

REPORT INFORMATION
  Report Type: 
  Country: None (occurrence: None)
  Receive Date: 20071025
  Receipt Date: 20070307
  Transmission Date: 20080405
  Serious: No
  Sender: FDA-Public Use
  Company Number: A0642184A

PATIENT
  Age: 86 Year
  Sex: Female

DRUGS (13)
  1. ADVAIR DISKUS 100/50 [Suspect]
     Indication: DRUG USE FOR UNKNOWN INDICATION
     Dosage: 1PUFF TWICE PER DAY
     Route: 055
     Dates: start: 20070101
  2. SPIRIVA [Concomitant]
  3. XOPENEX [Concomitant]
  4. ALBUTEROL WITH NEBULIZER [Concomitant]
  5. LOTREL [Concomitant]
  6. LORAZEPAM [Concomitant]
  7. TEMAZEPAM [Concomitant]
  8. LASIX [Concomitant]
  9. POTASSIUM CHLORIDE [Concomitant]
  10. ONE A DAY VITAMIN [Concomitant]
  11. ASPIRIN [Concomitant]
  12. TYLENOL ARTHRITIS [Concomitant]
  13. LORTAB [Concomitant]

REACTIONS (3)
  - DYSPNOEA [None]
  - EPISTAXIS [None]
  - NERVOUSNESS [None]
